FAERS Safety Report 23249830 (Version 4)
Quarter: 2024Q1

REPORT INFORMATION
  Report Type: Spontaneous
  Country: PL (occurrence: PL)
  Receive Date: 20231201
  Receipt Date: 20240305
  Transmission Date: 20240410
  Serious: Yes (Hospitalization, Other)
  Sender: FDA-Public Use
  Company Number: PL-AUROBINDO-AUR-APL-2023-075644

PATIENT
  Age: 4 Year
  Sex: Male

DRUGS (13)
  1. AMOXICILLIN [Suspect]
     Active Substance: AMOXICILLIN
     Indication: Respiratory tract infection
     Dosage: UNK
     Route: 065
  2. AMOXICILLIN [Suspect]
     Active Substance: AMOXICILLIN
     Indication: Pharyngitis
  3. AMOXICILLIN [Suspect]
     Active Substance: AMOXICILLIN
     Indication: Bronchitis
  4. FENOTEROL [Suspect]
     Active Substance: FENOTEROL
     Indication: Respiratory tract infection
     Dosage: UNK
     Route: 065
  5. FENOTEROL [Suspect]
     Active Substance: FENOTEROL
     Indication: Bronchitis
  6. FENOTEROL [Suspect]
     Active Substance: FENOTEROL
     Indication: Pharyngitis
  7. IPRATROPIUM [Suspect]
     Active Substance: IPRATROPIUM
     Indication: Respiratory tract infection
     Dosage: UNK
     Route: 065
  8. IPRATROPIUM [Suspect]
     Active Substance: IPRATROPIUM
     Indication: Bronchitis
  9. IPRATROPIUM [Suspect]
     Active Substance: IPRATROPIUM
     Indication: Pharyngitis
  10. CARBAMAZEPINE [Suspect]
     Active Substance: CARBAMAZEPINE
     Indication: Epilepsy
     Dosage: UNK
     Route: 065
  11. CARBAMAZEPINE [Concomitant]
     Active Substance: CARBAMAZEPINE
     Indication: Epilepsy
     Dosage: UNK
     Route: 065
  12. FENOTEROL\IPRATROPIUM BROMIDE [Concomitant]
     Active Substance: FENOTEROL\IPRATROPIUM BROMIDE
     Indication: Bronchitis
     Dosage: UNK
     Route: 065
  13. FENOTEROL\IPRATROPIUM BROMIDE [Concomitant]
     Active Substance: FENOTEROL\IPRATROPIUM BROMIDE
     Indication: Pharyngitis

REACTIONS (4)
  - Rash [Recovered/Resolved]
  - Drug ineffective [Unknown]
  - Pyrexia [Recovered/Resolved]
  - Asthenia [Unknown]
